FAERS Safety Report 7466457-7 (Version None)
Quarter: 2011Q2

REPORT INFORMATION
  Report Type: 
  Country: None (occurrence: None)
  Receive Date: 20110509
  Receipt Date: 20100816
  Transmission Date: 20111010
  Serious: No
  Sender: FDA-Public Use
  Company Number: US-ALEXION-A201001001

PATIENT
  Sex: Female

DRUGS (5)
  1. ORAL CONTRACEPTIVE NOS [Concomitant]
     Dosage: UNK
     Route: 048
  2. PERCOCET [Concomitant]
     Dosage: UNK
     Route: 048
  3. SOLIRIS [Suspect]
     Indication: PAROXYSMAL NOCTURNAL HAEMOGLOBINURIA
     Dosage: 600 MG, QW X4
     Route: 042
     Dates: start: 20100720
  4. SOLIRIS [Suspect]
     Dosage: 900 MG, Q2W
     Route: 042
     Dates: start: 20100817
  5. CELEXA [Concomitant]

REACTIONS (4)
  - CHILLS [None]
  - NAUSEA [None]
  - HEADACHE [None]
  - MUSCLE TIGHTNESS [None]
